FAERS Safety Report 9933482 (Version 1)
Quarter: 2014Q1

REPORT INFORMATION
  Report Type: Report from Study
  Country: US (occurrence: US)
  Receive Date: 20140228
  Receipt Date: 20140228
  Transmission Date: 20141002
  Serious: No
  Sender: FDA-Public Use
  Company Number: US-MYLANLABS-2013S1009798

PATIENT
  Age: 20 Year
  Sex: Female
  Weight: 58.97 kg

DRUGS (5)
  1. AMNESTEEM CAPSULES [Suspect]
     Indication: ACNE
     Route: 048
     Dates: start: 201302, end: 20130501
  2. MULTIVITAMIN [Concomitant]
  3. BIOTIN [Concomitant]
  4. CALCIUM [Concomitant]
  5. SPRINTEC [Concomitant]
     Indication: CONTRACEPTION

REACTIONS (2)
  - Nightmare [Not Recovered/Not Resolved]
  - Mood altered [Not Recovered/Not Resolved]
